FAERS Safety Report 7803178-2 (Version None)
Quarter: 2011Q4

REPORT INFORMATION
  Report Type: 
  Country: None (occurrence: None)
  Receive Date: 20111007
  Receipt Date: 20110930
  Transmission Date: 20120403
  Serious: Yes (Other)
  Sender: FDA-Public Use
  Company Number: PHEH2011US05735

PATIENT
  Sex: Female

DRUGS (6)
  1. ASPIRIN [Suspect]
  2. RECLAST [Suspect]
     Dosage: UNK UKN, UNK
     Route: 042
     Dates: start: 20110101
  3. LASIX [Concomitant]
  4. AREADS FORMULA 2 [Concomitant]
  5. ACCUPRIL [Concomitant]
  6. PEPCID [Concomitant]

REACTIONS (2)
  - HAEMORRHAGE [None]
  - HAEMOGLOBIN DECREASED [None]
